FAERS Safety Report 7799373-1 (Version None)
Quarter: 2011Q4

REPORT INFORMATION
  Report Type: 
  Country: None (occurrence: None)
  Receive Date: 20111006
  Receipt Date: 20110929
  Transmission Date: 20120403
  Serious: Yes (Hospitalization)
  Sender: FDA-Public Use
  Company Number: NL-ROXANE LABORATORIES, INC.-2011-RO-01377RO

PATIENT
  Age: 3 Month

DRUGS (1)
  1. PROPRANOLOL [Suspect]
     Indication: HAEMANGIOMA

REACTIONS (2)
  - BRONCHIAL HYPERREACTIVITY [None]
  - HYPOTENSION [None]
